FAERS Safety Report 4690419-6 (Version None)
Quarter: 2005Q2

REPORT INFORMATION
  Report Type: 
  Country: None (occurrence: None)
  Receive Date: 20050615
  Receipt Date: 20050606
  Transmission Date: 20051028
  Serious: Yes (Hospitalization)
  Sender: FDA-Public Use
  Company Number: 2005CG01051

PATIENT
  Age: 41 Year
  Sex: Female
  Weight: 105 kg

DRUGS (7)
  1. XYLOCAINE [Suspect]
     Indication: LOCAL ANAESTHESIA
     Dosage: 9 MG PER DOSE
     Route: 049
     Dates: start: 20050513, end: 20050513
  2. XYLOCAINE [Suspect]
     Indication: LOCAL ANAESTHESIA
     Route: 007
     Dates: start: 20050513, end: 20050513
  3. XYLOCAINE [Suspect]
     Route: 045
     Dates: start: 20050513, end: 20050513
  4. XYLOCAINE [Suspect]
     Indication: LOCAL ANAESTHESIA
     Route: 049
     Dates: start: 20050513, end: 20050513
  5. FLIXOTIDE DISKUS [Concomitant]
     Indication: ASTHMA
  6. VENTOLIN [Concomitant]
     Indication: ASTHMA
  7. AERIUS [Concomitant]
     Indication: ASTHMA

REACTIONS (2)
  - APHASIA [None]
  - HEMIPARESIS [None]
